FAERS Safety Report 5514786-6 (Version None)
Quarter: 2007Q4

REPORT INFORMATION
  Report Type: 
  Country: None (occurrence: None)
  Receive Date: 20071113
  Receipt Date: 20071030
  Transmission Date: 20080405
  Serious: Yes (Disabling, Other)
  Sender: FDA-Public Use
  Company Number: CA-SHR-CA-2007-020225

PATIENT
  Age: 62 Year
  Sex: Female
  Weight: 91 kg

DRUGS (6)
  1. BETASERON [Suspect]
     Indication: RELAPSING-REMITTING MULTIPLE SCLEROSIS
     Dosage: 8 MIU, EVERY 2D
     Route: 058
     Dates: start: 20030407, end: 20070705
  2. BETASERON [Suspect]
     Dosage: 8 MIU, EVERY 2D
     Route: 058
     Dates: start: 20070101, end: 20071001
  3. CALCIUM [Concomitant]
     Dosage: 1 TAB(S), UNK
     Route: 048
  4. VITAMINS [Concomitant]
     Dosage: 1 TAB(S), UNK
     Route: 048
  5. VITAMIN CAP [Concomitant]
  6. PRIMROSE OIL [Concomitant]

REACTIONS (9)
  - ACTIVITIES OF DAILY LIVING IMPAIRED [None]
  - AMNESIA [None]
  - CYSTITIS [None]
  - GAIT DISTURBANCE [None]
  - MENTAL IMPAIRMENT [None]
  - MUSCULOSKELETAL STIFFNESS [None]
  - PAIN IN EXTREMITY [None]
  - POOR QUALITY SLEEP [None]
  - WEIGHT INCREASED [None]
